FAERS Safety Report 8914871 (Version 3)
Quarter: 2012Q4

REPORT INFORMATION
  Report Type: Report from Study
  Country: DE (occurrence: DE)
  Receive Date: 20121116
  Receipt Date: 20121227
  Transmission Date: 20130627
  Serious: Yes (Life-Threatening)
  Sender: FDA-Public Use
  Company Number: DE-GILEAD-2012-0058587

PATIENT
  Age: 78 Year
  Sex: Male

DRUGS (3)
  1. AMBRISENTAN [Suspect]
     Indication: PULMONARY ARTERIAL HYPERTENSION
     Dosage: 5 mg, QD
     Route: 048
     Dates: start: 20110119, end: 20120523
  2. AMBRISENTAN [Suspect]
     Dosage: 10 mg, QD
     Route: 048
     Dates: start: 20090224, end: 20120523
  3. AMBRISENTAN [Suspect]
     Dosage: 5 mg, QD
     Route: 048
     Dates: start: 20080721

REACTIONS (3)
  - Asthenia [Recovering/Resolving]
  - Hypercapnia [Recovered/Resolved]
  - Fall [Recovering/Resolving]
